FAERS Safety Report 6539214-3 (Version None)
Quarter: 2010Q1

REPORT INFORMATION
  Report Type: 
  Country: None (occurrence: None)
  Receive Date: 20100115
  Receipt Date: 20100104
  Transmission Date: 20100710
  Serious: Yes (Life-Threatening, Hospitalization, Other)
  Sender: FDA-Public Use
  Company Number: US-ELI_LILLY_AND_COMPANY-US201001000224

PATIENT
  Age: 36 Year
  Sex: Male

DRUGS (3)
  1. OLANZAPINE [Suspect]
     Dosage: 1 D/F, UNK
  2. SOTALOL [Concomitant]
     Dosage: 1 D/F, UNK
  3. ALCOHOL [Concomitant]
     Dosage: 1 D/F, UNK

REACTIONS (8)
  - ELECTROCARDIOGRAM QT PROLONGED [None]
  - HEART RATE DECREASED [None]
  - HYPOTENSION [None]
  - MENTAL STATUS CHANGES [None]
  - OVERDOSE [None]
  - SOMNOLENCE [None]
  - TORSADE DE POINTES [None]
  - VENTRICULAR TACHYCARDIA [None]
